FAERS Safety Report 5629087-5 (Version None)
Quarter: 2008Q1

REPORT INFORMATION
  Report Type: 
  Country: None (occurrence: None)
  Receive Date: 20080216
  Receipt Date: 20071218
  Transmission Date: 20080703
  Serious: Yes (Other)
  Sender: FDA-Public Use
  Company Number: US-PURDUE-USA_2007_0031632

PATIENT
  Sex: Female

DRUGS (3)
  1. OXYCONTIN [Suspect]
     Indication: BACK PAIN
     Dosage: 40 MG, QID
     Dates: start: 20000101, end: 20030101
  2. METHADONE HCL [Concomitant]
  3. ANTIINFLAMMATORY/ANTIRHEUMATIC PRODUCTS [Concomitant]
     Dosage: 800 MG, QID

REACTIONS (7)
  - ANGER [None]
  - ANHEDONIA [None]
  - ASTHENIA [None]
  - BREAKTHROUGH PAIN [None]
  - DEPRESSION [None]
  - PAIN THRESHOLD DECREASED [None]
  - SUICIDAL IDEATION [None]
